FAERS Safety Report 12445753 (Version 4)
Quarter: 2019Q3

REPORT INFORMATION
  Report Type: Spontaneous
  Country: US (occurrence: US)
  Receive Date: 20160608
  Receipt Date: 20190729
  Transmission Date: 20191004
  Serious: No
  Sender: FDA-Public Use
  Company Number: US-JNJFOC-20160411835

PATIENT
  Sex: Male

DRUGS (12)
  1. RISPERIDONE. [Suspect]
     Active Substance: RISPERIDONE
     Indication: DEPRESSION
  2. RISPERIDONE. [Suspect]
     Active Substance: RISPERIDONE
     Indication: ATTENTION DEFICIT/HYPERACTIVITY DISORDER
     Route: 048
     Dates: start: 20061123, end: 20070726
  3. RISPERIDONE. [Suspect]
     Active Substance: RISPERIDONE
     Route: 048
     Dates: start: 20150310
  4. RISPERIDONE. [Suspect]
     Active Substance: RISPERIDONE
     Route: 048
     Dates: start: 20140311, end: 20140509
  5. RISPERIDONE. [Suspect]
     Active Substance: RISPERIDONE
     Route: 048
     Dates: start: 20120624, end: 20130815
  6. RISPERIDONE. [Suspect]
     Active Substance: RISPERIDONE
     Indication: BIPOLAR DISORDER
     Route: 048
     Dates: start: 20061123, end: 20111222
  7. RISPERIDONE. [Suspect]
     Active Substance: RISPERIDONE
     Route: 048
     Dates: start: 20140809, end: 20141202
  8. RISPERIDONE. [Suspect]
     Active Substance: RISPERIDONE
     Indication: ATTENTION DEFICIT/HYPERACTIVITY DISORDER
     Dosage: VARYING DOSES 1 MG AND 3 MG
     Route: 048
     Dates: start: 20080808, end: 20150310
  9. RISPERIDONE. [Suspect]
     Active Substance: RISPERIDONE
     Indication: PRODUCT USED FOR UNKNOWN INDICATION
     Route: 048
     Dates: start: 20080808, end: 20110318
  10. RISPERIDONE. [Suspect]
     Active Substance: RISPERIDONE
     Route: 048
     Dates: start: 20110523, end: 20150410
  11. RISPERIDONE. [Suspect]
     Active Substance: RISPERIDONE
     Indication: DEPRESSION
     Route: 048
     Dates: start: 20070813, end: 20080714
  12. RISPERIDONE. [Suspect]
     Active Substance: RISPERIDONE
     Indication: BIPOLAR DISORDER
     Route: 048
     Dates: start: 20091117, end: 20130427

REACTIONS (3)
  - Gynaecomastia [Unknown]
  - Therapy cessation [Unknown]
  - Emotional distress [Unknown]
